FAERS Safety Report 15902828 (Version 4)
Quarter: 2019Q1

REPORT INFORMATION
  Report Type: Spontaneous
  Country: CZ (occurrence: CZ)
  Receive Date: 20190202
  Receipt Date: 20190315
  Transmission Date: 20190417
  Serious: Yes (Hospitalization)
  Sender: FDA-Public Use
  Company Number: CZ-AUROBINDO-AUR-APL-2019-002022

PATIENT

DRUGS (18)
  1. AZITHROMYCIN ANHYDROUS. [Suspect]
     Active Substance: AZITHROMYCIN ANHYDROUS
     Indication: CHRONIC SPONTANEOUS URTICARIA
  2. PREDNISONE. [Suspect]
     Active Substance: PREDNISONE
     Dosage: 40 MILLIGRAM, ONCE A DAY
     Route: 048
     Dates: start: 20160226
  3. DESLORATADINE FILM-COATED TABLET [Suspect]
     Active Substance: DESLORATADINE
     Indication: URTICARIA
     Dosage: 5 MILLIGRAM, ONCE A DAY
     Route: 065
     Dates: start: 201601, end: 201601
  4. AZITHROMYCIN ANHYDROUS. [Suspect]
     Active Substance: AZITHROMYCIN ANHYDROUS
     Indication: URTICARIA
     Dosage: 500 MILLIGRAM, ONCE A DAY
     Route: 065
     Dates: start: 20160203, end: 20160209
  5. BILASTINE [Suspect]
     Active Substance: BILASTINE
     Indication: CHRONIC SPONTANEOUS URTICARIA
     Dosage: 60 MILLIGRAM
     Route: 065
  6. AMOXICILLIN. [Suspect]
     Active Substance: AMOXICILLIN
     Indication: URTICARIA
     Dosage: 1 GRAM, TWO TIMES A DAY
     Route: 048
     Dates: start: 20160226
  7. DIPROPHOS [Concomitant]
     Active Substance: BETAMETHASONE DIPROPIONATE\BETAMETHASONE SODIUM PHOSPHATE
     Indication: CHRONIC SPONTANEOUS URTICARIA
     Dosage: 1 MILLILITER
     Route: 030
     Dates: start: 20160203
  8. BISULEPIN HYDROCHLORIDE [Concomitant]
     Active Substance: BISULEPIN HYDROCHLORIDE
     Indication: PRODUCT USED FOR UNKNOWN INDICATION
     Dosage: UNK
     Route: 065
  9. AMOXICILLIN. [Suspect]
     Active Substance: AMOXICILLIN
     Indication: CHRONIC SPONTANEOUS URTICARIA
  10. BETAMETHASONE. [Concomitant]
     Active Substance: BETAMETHASONE
     Indication: CHRONIC SPONTANEOUS URTICARIA
     Dosage: UNK
     Route: 061
  11. BILASTINE [Suspect]
     Active Substance: BILASTINE
     Indication: URTICARIA CHRONIC
     Dosage: 20 MILLIGRAM, ONCE A DAY
     Route: 065
     Dates: start: 201601, end: 201601
  12. BILASTINE [Suspect]
     Active Substance: BILASTINE
     Dosage: 60 MILLIGRAM, UNK
     Route: 065
     Dates: start: 20160226
  13. PREDNISONE. [Suspect]
     Active Substance: PREDNISONE
     Indication: CHRONIC SPONTANEOUS URTICARIA
     Dosage: 10 MILLIGRAM, ONCE A DAY
     Route: 065
  14. DIPROPHOS [Concomitant]
     Active Substance: BETAMETHASONE DIPROPIONATE\BETAMETHASONE SODIUM PHOSPHATE
     Indication: URTICARIA
  15. PREDNISONE. [Suspect]
     Active Substance: PREDNISONE
     Indication: URTICARIA
     Dosage: 60 MILLIGRAM, ONCE A DAY
     Route: 065
     Dates: start: 20160212, end: 20160225
  16. BILASTINE [Suspect]
     Active Substance: BILASTINE
     Dosage: 40 MILLIGRAM, ONCE A DAY
     Route: 048
     Dates: start: 201601, end: 20160226
  17. OMALIZUMAB. [Suspect]
     Active Substance: OMALIZUMAB
     Indication: URTICARIA
     Dosage: 1 GRAM FOR 1 HOUR
     Route: 048
     Dates: start: 20160226
  18. BETAMETHASONE. [Concomitant]
     Active Substance: BETAMETHASONE
     Indication: URTICARIA

REACTIONS (7)
  - Leukocytosis [Unknown]
  - Drug ineffective [Recovered/Resolved]
  - Nausea [Recovered/Resolved]
  - Abdominal pain lower [Recovered/Resolved]
  - Polycythaemia [Unknown]
  - Prescribed overdose [Unknown]
  - Throat irritation [Recovered/Resolved]

NARRATIVE: CASE EVENT DATE: 2016
